FAERS Safety Report 4292810-9 (Version None)
Quarter: 2004Q1

REPORT INFORMATION
  Report Type: 
  Country: None (occurrence: None)
  Receive Date: 20040210
  Receipt Date: 20040128
  Transmission Date: 20041129
  Serious: Yes (Hospitalization)
  Sender: FDA-Public Use
  Company Number: FR-JNJFOC-20040105995

PATIENT
  Age: 28 Year
  Sex: Male
  Weight: 70 kg

DRUGS (5)
  1. REMICADE [Suspect]
     Indication: ANKYLOSING SPONDYLITIS
     Dosage: 400 MG, 1 IN 1 DAY, INTRAVENOUS
     Route: 042
     Dates: start: 20030924, end: 20030924
  2. METHOTREXATE [Suspect]
     Indication: DRUG USE FOR UNKNOWN INDICATION
     Dosage: , 1 IN 1 DAY, ORAL
     Route: 048
     Dates: start: 20030827, end: 20030924
  3. BUTAZOLIDINE (BUTAZOLIDINE) [Concomitant]
  4. DIAGIREX (APOREX) [Concomitant]
  5. RIFINAH (RIFINAH) [Concomitant]

REACTIONS (3)
  - ABDOMINAL PAIN [None]
  - ACCIDENTAL OVERDOSE [None]
  - MEDICATION ERROR [None]
